FAERS Safety Report 18910560 (Version 1)
Quarter: 2021Q1

REPORT INFORMATION
  Report Type: Spontaneous
  Country: US (occurrence: US)
  Receive Date: 20210218
  Receipt Date: 20210218
  Transmission Date: 20210420
  Serious: Yes (Hospitalization)
  Sender: FDA-Public Use
  Company Number: US-SA-2021SA047548

PATIENT
  Age: 15 Year
  Sex: Female

DRUGS (2)
  1. BASAGLAR [Concomitant]
     Active Substance: INSULIN GLARGINE
     Dosage: UNK
  2. LANTUS [Suspect]
     Active Substance: INSULIN GLARGINE
     Indication: CYSTIC FIBROSIS RELATED DIABETES
     Dosage: UNK
     Dates: start: 2019

REACTIONS (3)
  - Off label use [Unknown]
  - Hospitalisation [Unknown]
  - Product dose omission issue [Unknown]
